FAERS Safety Report 20566636 (Version 1)
Quarter: 2022Q1

REPORT INFORMATION
  Report Type: Spontaneous
  Country: AU (occurrence: AU)
  Receive Date: 20220308
  Receipt Date: 20220308
  Transmission Date: 20220423
  Serious: Yes (Hospitalization)
  Sender: FDA-Public Use
  Company Number: AU-ELI_LILLY_AND_COMPANY-AU202110001390

PATIENT
  Age: 43 Year
  Sex: Female

DRUGS (1)
  1. BARICITINIB [Suspect]
     Active Substance: BARICITINIB
     Indication: Systemic lupus erythematosus
     Dosage: 4 MG, DAILY
     Route: 065
     Dates: start: 2021

REACTIONS (3)
  - Malaise [Unknown]
  - Liver function test abnormal [Unknown]
  - Off label use [Unknown]
